FAERS Safety Report 7555599-3 (Version None)
Quarter: 2011Q2

REPORT INFORMATION
  Report Type: 
  Country: None (occurrence: None)
  Receive Date: 20110617
  Receipt Date: 20010108
  Transmission Date: 20111010
  Serious: Yes (Hospitalization)
  Sender: FDA-Public Use
  Company Number: PHEH2001US00662

PATIENT

DRUGS (6)
  1. LOTREL [Concomitant]
  2. ISOSORBIDE [Concomitant]
  3. EXELON [Suspect]
     Indication: DEMENTIA ALZHEIMER'S TYPE
     Dosage: 1.5 MBQ, BID
     Route: 048
     Dates: start: 20000926
  4. HALDOL [Concomitant]
  5. PLAVIX [Concomitant]
  6. NEURONTIN [Concomitant]

REACTIONS (4)
  - TREMOR [None]
  - CONVULSION [None]
  - PNEUMONIA [None]
  - CEREBROVASCULAR ACCIDENT [None]
